FAERS Safety Report 20695650 (Version 1)
Quarter: 2022Q2

REPORT INFORMATION
  Report Type: Spontaneous
  Country: US (occurrence: None)
  Receive Date: 20220408
  Receipt Date: 20220408
  Transmission Date: 20220720
  Serious: No
  Sender: FDA-Public Use
  Company Number: None

PATIENT
  Age: 28 Year
  Sex: Female
  Weight: 91.35 kg

DRUGS (1)
  1. TECFIDERA [Suspect]
     Active Substance: DIMETHYL FUMARATE
     Indication: Demyelination
     Dosage: FREQUENCY : TWICE A DAY;?
     Route: 048
     Dates: start: 20220407

REACTIONS (3)
  - Burning sensation [None]
  - Erythema [None]
  - Urticaria [None]

NARRATIVE: CASE EVENT DATE: 20220407
